FAERS Safety Report 15601685 (Version 1)
Quarter: 2018Q4

REPORT INFORMATION
  Report Type: Spontaneous
  Country: JP (occurrence: JP)
  Receive Date: 20181109
  Receipt Date: 20181109
  Transmission Date: 20190205
  Serious: Yes (Hospitalization)
  Sender: FDA-Public Use
  Company Number: PHHY2008JP26591

PATIENT
  Age: 78 Year
  Sex: Female

DRUGS (2)
  1. GLIVEC [Suspect]
     Active Substance: IMATINIB MESYLATE
     Dosage: 400 MG / DAILY
     Route: 048
     Dates: end: 20070717
  2. GLIVEC [Suspect]
     Active Substance: IMATINIB MESYLATE
     Indication: GASTROINTESTINAL STROMAL TUMOUR
     Dosage: 400 MG / DAILY
     Route: 048
     Dates: start: 20070706

REACTIONS (6)
  - Anaemia [Unknown]
  - Intra-abdominal haemorrhage [Recovered/Resolved]
  - Abdominal pain lower [Unknown]
  - Haemorrhagic ascites [Unknown]
  - Abdominal cavity drainage [Unknown]
  - Surgery [Unknown]

NARRATIVE: CASE EVENT DATE: 20070717
